FAERS Safety Report 9056142 (Version 3)
Quarter: 2013Q1

REPORT INFORMATION
  Report Type: Spontaneous
  Country: BR (occurrence: BR)
  Receive Date: 20130205
  Receipt Date: 20130314
  Transmission Date: 20140127
  Serious: Yes (Other)
  Sender: FDA-Public Use
  Company Number: PHHY2013BR008918

PATIENT
  Age: 48 Year
  Sex: Female
  Weight: 63 kg

DRUGS (1)
  1. FEMARA [Suspect]
     Dosage: 0.5 MG, UNK
     Route: 048

REACTIONS (9)
  - Visual impairment [Recovered/Resolved]
  - Candida infection [Unknown]
  - Vaginal haemorrhage [Recovered/Resolved]
  - Abdominal pain upper [Unknown]
  - Blood follicle stimulating hormone increased [Recovered/Resolved]
  - Blood luteinising hormone increased [Recovered/Resolved]
  - Stress [Recovered/Resolved]
  - Headache [Recovered/Resolved]
  - Pain [Recovered/Resolved]
